FAERS Safety Report 6444568-2 (Version None)
Quarter: 2009Q4

REPORT INFORMATION
  Report Type: 
  Country: None (occurrence: None)
  Receive Date: 20091118
  Receipt Date: 20090909
  Transmission Date: 20100525
  Serious: No
  Sender: FDA-Public Use
  Company Number: A0806567A

PATIENT
  Age: 50 Year
  Sex: Male

DRUGS (8)
  1. COREG CR [Suspect]
     Indication: HYPERTENSION
     Dosage: 80MG PER DAY
     Route: 048
     Dates: start: 20070101
  2. AVAPRO [Concomitant]
  3. CRESTOR [Concomitant]
  4. JANUMET [Concomitant]
  5. PRILOSEC [Concomitant]
  6. VITAMIN B6 [Concomitant]
  7. NIACIN [Concomitant]
  8. M.V.I. [Concomitant]

REACTIONS (2)
  - BLOOD PRESSURE FLUCTUATION [None]
  - DRUG INEFFECTIVE [None]
